FAERS Safety Report 23993942 (Version 2)
Quarter: 2024Q3

REPORT INFORMATION
  Report Type: Spontaneous
  Country: CA (occurrence: CA)
  Receive Date: 20240620
  Receipt Date: 20240813
  Transmission Date: 20241017
  Serious: Yes (Hospitalization)
  Sender: HIKMA
  Company Number: CA-HIKMA PHARMACEUTICALS-CA-H14001-24-05225

PATIENT
  Age: 7 Decade
  Sex: Male

DRUGS (16)
  1. FENTANYL [Suspect]
     Active Substance: FENTANYL\FENTANYL CITRATE
     Indication: Vasoplegia syndrome
     Dosage: UNKNOWN
     Route: 065
  2. METHYLENE BLUE [Suspect]
     Active Substance: METHYLENE BLUE
     Dosage: 0.6 MILLIGRAM PER LITRE, QH
     Route: 065
  3. METHYLENE BLUE [Suspect]
     Active Substance: METHYLENE BLUE
     Dosage: 0.8 MILLIGRAM PER LITRE UNK, QH
     Route: 065
  4. METHYLENE BLUE [Suspect]
     Active Substance: METHYLENE BLUE
     Dosage: 1 MILLIGRAM PER LITRE, QH
     Route: 065
  5. METHYLENE BLUE [Suspect]
     Active Substance: METHYLENE BLUE
     Dosage: 1 MILLIGRAM PER LITRE
     Route: 065
  6. METHYLENE BLUE [Suspect]
     Active Substance: METHYLENE BLUE
     Dosage: 1.5 MILLIGRAM PER LITRE
     Route: 065
  7. METHYLENE BLUE [Suspect]
     Active Substance: METHYLENE BLUE
     Dosage: UNKNOWN
     Route: 042
  8. METHYLENE BLUE [Suspect]
     Active Substance: METHYLENE BLUE
     Indication: Vasoplegia syndrome
     Dosage: UNKNOWN
     Route: 065
  9. EPINEPHRINE HYDROCHLORIDE [Concomitant]
     Active Substance: EPINEPHRINE HYDROCHLORIDE
     Dosage: 0.05 UG PER KG, ONE EVERY MINUTE
     Route: 065
  10. EPINEPHRINE HYDROCHLORIDE [Concomitant]
     Active Substance: EPINEPHRINE HYDROCHLORIDE
     Indication: Hypotension
     Dosage: UNKNOWN
     Route: 065
  11. LYPRESSIN [Concomitant]
     Active Substance: LYPRESSIN
     Indication: Hypotension
     Dosage: UNKNOWN
     Route: 065
  12. NOREPINEPHRINE [Concomitant]
     Active Substance: NOREPINEPHRINE\NOREPINEPHRINE BITARTRATE
     Indication: Hypotension
     Dosage: UNKNOWN
     Route: 065
  13. NOREPINEPHRINE BITARTRATE [Concomitant]
     Active Substance: NOREPINEPHRINE BITARTRATE
     Indication: Vasoplegia syndrome
     Dosage: 0.3 UG PER KG, ONE EVERY MINUTE
     Route: 065
  14. PIPERACILLIN SODIUM\TAZOBACTAM SODIUM [Concomitant]
     Active Substance: PIPERACILLIN SODIUM\TAZOBACTAM SODIUM
     Indication: Antibiotic therapy
     Dosage: UNKNOWN
     Route: 065
  15. VANCOMYCIN HYDROCHLORIDE [Concomitant]
     Active Substance: VANCOMYCIN HYDROCHLORIDE
     Indication: Antibiotic therapy
     Dosage: UNKNOWN
     Route: 065
  16. VASOPRESSIN [Concomitant]
     Active Substance: VASOPRESSIN
     Indication: Vasoplegia syndrome
     Dosage: UNKNOWN
     Route: 065

REACTIONS (4)
  - Anticholinergic syndrome [Recovered/Resolved]
  - Multiple organ dysfunction syndrome [Recovered/Resolved]
  - Drug interaction [Recovered/Resolved]
  - Toxicity to various agents [Recovered/Resolved]
